FAERS Safety Report 7019921-9 (Version None)
Quarter: 2010Q3

REPORT INFORMATION
  Report Type: 
  Country: None (occurrence: None)
  Receive Date: 20100929
  Receipt Date: 20100412
  Transmission Date: 20110219
  Serious: Yes (Other)
  Sender: FDA-Public Use
  Company Number: US-ASTRAZENECA-2009UW16456

PATIENT
  Age: 20584 Day
  Sex: Male
  Weight: 82.1 kg

DRUGS (14)
  1. SEROQUEL [Suspect]
     Dosage: 100 MG
     Route: 048
     Dates: start: 20030610, end: 20040311
  2. SEROQUEL [Suspect]
     Route: 048
     Dates: start: 20050103
  3. ZYPREXA [Concomitant]
     Dosage: 5 MG
     Dates: start: 20030310
  4. LORAZEPAM [Concomitant]
     Dosage: 2 MG
     Dates: start: 20030502
  5. LORAZEPAM [Concomitant]
     Dates: start: 20041220
  6. METOCLOPRAMIDE [Concomitant]
     Dates: start: 20050204
  7. HYDROCODON/APAP [Concomitant]
     Dosage: 5/500
     Dates: start: 20030317
  8. DOXEPIN HCL [Concomitant]
     Dates: start: 20050103
  9. CELEBREX [Concomitant]
     Dates: start: 20050103
  10. GABAPENTIN [Concomitant]
  11. PAXIL [Concomitant]
     Dosage: 20 MG
     Dates: start: 20040707
  12. NEURONTIN [Concomitant]
     Dosage: 100-300 MG
     Dates: start: 20030829
  13. ALPRAZOLAM [Concomitant]
     Dosage: 0.5 MG
     Dates: start: 20030520
  14. CYCLOBENZAP [Concomitant]
     Dosage: 10 MG
     Dates: start: 20030512

REACTIONS (12)
  - AMMONIA [None]
  - ANXIETY [None]
  - AZOTAEMIA [None]
  - DEPRESSION [None]
  - DIABETES MELLITUS INADEQUATE CONTROL [None]
  - DIABETIC KETOACIDOSIS [None]
  - DIABETIC NEPHROPATHY [None]
  - DIABETIC NEUROPATHY [None]
  - ERECTILE DYSFUNCTION [None]
  - LIMB REDUCTION DEFECT [None]
  - LIVER INJURY [None]
  - TYPE 2 DIABETES MELLITUS [None]
